FAERS Safety Report 11243629 (Version 3)
Quarter: 2015Q3

REPORT INFORMATION
  Report Type: Report from Study
  Country: GB (occurrence: GB)
  Receive Date: 20150707
  Receipt Date: 20150720
  Transmission Date: 20151125
  Serious: Yes (Hospitalization)
  Sender: FDA-Public Use
  Company Number: GB-JNJFOC-20150622243

PATIENT
  Age: 59 Year
  Sex: Male

DRUGS (1)
  1. STELARA [Suspect]
     Active Substance: USTEKINUMAB
     Indication: PSORIASIS
     Route: 058
     Dates: start: 20120315

REACTIONS (2)
  - Oesophageal ulcer [Unknown]
  - Syncope [Unknown]

NARRATIVE: CASE EVENT DATE: 20150626
